FAERS Safety Report 19614618 (Version 1)
Quarter: 2021Q3

REPORT INFORMATION
  Report Type: Spontaneous
  Country: US (occurrence: US)
  Receive Date: 20210727
  Receipt Date: 20210727
  Transmission Date: 20211014
  Serious: Yes (Other)
  Sender: FDA-Public Use
  Company Number: None

PATIENT
  Sex: Female

DRUGS (1)
  1. CELECOXIB 200 MG [Suspect]
     Active Substance: CELECOXIB

REACTIONS (1)
  - Drug ineffective [None]
